FAERS Safety Report 9702452 (Version 1)
Quarter: 2013Q4

REPORT INFORMATION
  Report Type: Spontaneous
  Country: US (occurrence: US)
  Receive Date: 20131121
  Receipt Date: 20131121
  Transmission Date: 20140711
  Serious: No
  Sender: FDA-Public Use
  Company Number: US-PFIZER INC-2013332710

PATIENT
  Age: 57 Year
  Sex: Female
  Weight: 86.17 kg

DRUGS (8)
  1. CORTISONE [Suspect]
     Indication: CARPAL TUNNEL SYNDROME
     Dosage: UNK
     Dates: start: 2013
  2. CORTISONE [Suspect]
     Indication: MORTON^S NEURALGIA
  3. MELOXICAM [Suspect]
     Indication: CARPAL TUNNEL SYNDROME
     Dosage: UNK
     Dates: start: 2013
  4. MELOXICAM [Suspect]
     Indication: MORTON^S NEURALGIA
  5. NAPROSYN [Suspect]
     Indication: CARPAL TUNNEL SYNDROME
     Dosage: UNK
     Dates: start: 2013
  6. NAPROSYN [Suspect]
     Indication: MORTON^S NEURALGIA
  7. DICLOFENAC SODIUM [Suspect]
     Indication: CARPAL TUNNEL SYNDROME
     Dosage: UNK
     Dates: start: 2013
  8. DICLOFENAC SODIUM [Suspect]
     Indication: MORTON^S NEURALGIA

REACTIONS (1)
  - Drug ineffective [Unknown]
